FAERS Safety Report 26057852 (Version 1)
Quarter: 2025Q4

REPORT INFORMATION
  Report Type: Spontaneous
  Country: CN (occurrence: CN)
  Receive Date: 20251118
  Receipt Date: 20251118
  Transmission Date: 20260117
  Serious: Yes (Other)
  Sender: ROCHE
  Company Number: CN-ROCHE-10000434511

PATIENT
  Age: 53 Year
  Sex: Female

DRUGS (5)
  1. BEVACIZUMAB [Suspect]
     Active Substance: BEVACIZUMAB
     Indication: Oligodendroglioma
     Route: 042
  2. THIOTEPA [Suspect]
     Active Substance: THIOTEPA
     Indication: Oligodendroglioma
     Route: 042
  3. TENIPOSIDE [Suspect]
     Active Substance: TENIPOSIDE
     Indication: Oligodendroglioma
     Route: 042
  4. TUNLAMETINIB [Suspect]
     Active Substance: TUNLAMETINIB
     Indication: Oligodendroglioma
     Route: 048
  5. TEMOZOLOMIDE [Concomitant]
     Active Substance: TEMOZOLOMIDE

REACTIONS (4)
  - Off label use [Unknown]
  - Myelosuppression [Unknown]
  - Thrombocytopenia [Unknown]
  - Leukopenia [Unknown]
